FAERS Safety Report 18329267 (Version 1)
Quarter: 2020Q3

REPORT INFORMATION
  Report Type: Spontaneous
  Country: US (occurrence: US)
  Receive Date: 20200929
  Receipt Date: 20200929
  Transmission Date: 20201103
  Serious: Yes (Other)
  Sender: FDA-Public Use
  Company Number: None

PATIENT
  Age: 53 Year
  Sex: Male

DRUGS (1)
  1. LORATADINE AND PSEUDOEPHEDRINE SULFATE [Suspect]
     Active Substance: LORATADINE\PSEUDOEPHEDRINE SULFATE
     Indication: MULTIPLE ALLERGIES
     Route: 048
     Dates: start: 20200330, end: 20200630

REACTIONS (4)
  - Abdominal discomfort [None]
  - Dizziness [None]
  - Agitation [None]
  - Heart rate increased [None]

NARRATIVE: CASE EVENT DATE: 20200330
